FAERS Safety Report 16018446 (Version 2)
Quarter: 2019Q1

REPORT INFORMATION
  Report Type: Report from Study
  Country: US (occurrence: US)
  Receive Date: 20190228
  Receipt Date: 20190322
  Transmission Date: 20190418
  Serious: Yes (Death)
  Sender: FDA-Public Use
  Company Number: PHEH2019US008750

PATIENT
  Age: 85 Year
  Sex: Male

DRUGS (1)
  1. ENTRESTO [Suspect]
     Active Substance: SACUBITRIL\VALSARTAN
     Indication: CARDIAC FAILURE
     Dosage: UNK UNK, BID
     Route: 048

REACTIONS (3)
  - Pulmonary mass [Unknown]
  - Blood pressure decreased [Unknown]
  - Death [Fatal]

NARRATIVE: CASE EVENT DATE: 20190311
